FAERS Safety Report 5730136-4 (Version None)
Quarter: 2008Q2

REPORT INFORMATION
  Report Type: 
  Country: None (occurrence: None)
  Receive Date: 20080507
  Receipt Date: 20080429
  Transmission Date: 20081010
  Serious: Yes (Other)
  Sender: FDA-Public Use
  Company Number: US-ROCHE-561756

PATIENT
  Sex: Female
  Weight: 44 kg

DRUGS (3)
  1. BONIVA [Suspect]
     Indication: OSTEOPOROSIS
     Route: 048
     Dates: start: 20070801, end: 20071001
  2. BONIVA [Suspect]
     Route: 048
     Dates: start: 20080118
  3. CALCIUM [Concomitant]

REACTIONS (2)
  - ALOPECIA [None]
  - DIVERTICULITIS [None]
